FAERS Safety Report 6204144-3 (Version None)
Quarter: 2009Q2

REPORT INFORMATION
  Report Type: 
  Country: None (occurrence: None)
  Receive Date: 20090521
  Receipt Date: 20090513
  Transmission Date: 20091009
  Serious: Yes (Death)
  Sender: FDA-Public Use
  Company Number: 1-18447530

PATIENT
  Sex: Male
  Weight: 136.0791 kg

DRUGS (2)
  1. FENTANYL-75 [Suspect]
     Indication: INJURY
     Dosage: 75 MCG/HR, TRANSDERMAL
     Route: 062
     Dates: start: 20090301, end: 20090314
  2. FENTANYL-75 [Suspect]
     Indication: PAIN
     Dosage: 75 MCG/HR, TRANSDERMAL
     Route: 062
     Dates: start: 20090301, end: 20090314

REACTIONS (3)
  - OVERDOSE [None]
  - PRODUCT QUALITY ISSUE [None]
  - RESPIRATORY DEPRESSION [None]
